FAERS Safety Report 14048119 (Version 1)
Quarter: 2017Q4

REPORT INFORMATION
  Report Type: Spontaneous
  Country: US (occurrence: US)
  Receive Date: 20171005
  Receipt Date: 20171005
  Transmission Date: 20180321
  Serious: Yes (Hospitalization)
  Sender: FDA-Public Use
  Company Number: US-SA-2017SA181846

PATIENT
  Age: 49 Year
  Sex: Male

DRUGS (3)
  1. SOLIQUA 100/33 [Suspect]
     Active Substance: INSULIN GLARGINE\LIXISENATIDE
     Dosage: DOSE:50 UNIT(S)
     Route: 058
     Dates: start: 20170408, end: 20170921
  2. LANTUS [Concomitant]
     Active Substance: INSULIN GLARGINE
     Dosage: DOSE:40 UNIT(S)
  3. SOLOSTAR [Suspect]
     Active Substance: DEVICE
     Dates: start: 20170408, end: 20170921

REACTIONS (1)
  - Impaired gastric emptying [Not Recovered/Not Resolved]
